FAERS Safety Report 7604645-7 (Version None)
Quarter: 2011Q3

REPORT INFORMATION
  Report Type: 
  Country: None (occurrence: None)
  Receive Date: 20110712
  Receipt Date: 20110629
  Transmission Date: 20111222
  Serious: Yes (Other)
  Sender: FDA-Public Use
  Company Number: US-CELGENEUS-163-21880-11051126

PATIENT
  Sex: Male
  Weight: 65.376 kg

DRUGS (9)
  1. PLAVIX [Concomitant]
     Dosage: 75 MILLIGRAM
     Route: 065
  2. SIMVASTATIN [Concomitant]
     Dosage: 40 MILLIGRAM
     Route: 065
  3. ULROIC [Concomitant]
     Indication: PROPHYLAXIS
     Dosage: 40 MILLIGRAM
     Route: 065
  4. LEXAPRO [Concomitant]
     Dosage: 10 MILLIGRAM
     Route: 065
  5. RENVELA [Concomitant]
     Dosage: 1600 MILLIGRAM
     Route: 065
  6. REVLIMID [Suspect]
     Indication: MULTIPLE MYELOMA
     Dosage: 2.1429 MILLIGRAM
     Route: 048
     Dates: start: 20101201
  7. ATIVAN [Concomitant]
     Indication: SLEEP DISORDER
     Dosage: 2 MILLIGRAM
     Route: 065
  8. ACYCLOVIR [Concomitant]
     Dosage: 400 MILLIGRAM
     Route: 065
  9. AMLODIPINE [Concomitant]
     Dosage: 10 MILLIGRAM
     Route: 065

REACTIONS (3)
  - VISUAL ACUITY REDUCED [None]
  - SCOTOMA [None]
  - VISUAL FIELD DEFECT [None]
